FAERS Safety Report 6507154-1 (Version None)
Quarter: 2009Q4

REPORT INFORMATION
  Report Type: 
  Country: None (occurrence: None)
  Receive Date: 20091221
  Receipt Date: 20091210
  Transmission Date: 20100525
  Serious: Yes (Other)
  Sender: FDA-Public Use
  Company Number: PHHY2009CA55037

PATIENT
  Sex: Male

DRUGS (2)
  1. SANDOSTATIN LAR [Suspect]
     Indication: CARCINOID TUMOUR
     Dosage: 20 MG EVERY 4 WEEKS
     Route: 030
     Dates: start: 20070806
  2. SANDOSTATIN LAR [Suspect]
     Indication: METASTASES TO LIVER
     Dosage: 30 MG, EVERY 4 WEEKS
     Route: 030
     Dates: start: 20091101

REACTIONS (2)
  - DYSPNOEA [None]
  - SYNCOPE [None]
